FAERS Safety Report 12160838 (Version 1)
Quarter: 2016Q1

REPORT INFORMATION
  Report Type: Other
  Country: DE (occurrence: DE)
  Receive Date: 20160308
  Receipt Date: 20160308
  Transmission Date: 20160526
  Serious: Yes (Congenital Anomaly, Other)
  Sender: FDA-Public Use
  Company Number: DE-VALIDUS PHARMACEUTICALS LLC-DE-2016VAL000280

PATIENT
  Age: 1 Day
  Sex: Male
  Weight: 2.47 kg

DRUGS (4)
  1. NEBIVOLOL. [Suspect]
     Active Substance: NEBIVOLOL
     Indication: TACHYCARDIA
     Dosage: 5 MG/D (0-12.6 GESTATIONAL WEEK)
     Route: 064
  2. FOLVERLAN [Concomitant]
     Active Substance: FOLIC ACID
     Indication: PRODUCT USED FOR UNKNOWN INDICATION
     Dosage: UNK
     Dates: start: 20150128, end: 20150130
  3. METOPROLOL TARTRATE. [Suspect]
     Active Substance: METOPROLOL TARTRATE
     Indication: TACHYCARDIA
     Dosage: 47.5 MG/D (12.6 - 38 GESTATIONAL WEEK)
     Route: 064
  4. DOPEGYT [Suspect]
     Active Substance: METHYLDOPA
     Indication: HYPERTENSION
     Dosage: 2000 MG, UNK
     Route: 064

REACTIONS (4)
  - Aneurysm [Unknown]
  - Hypoglycaemia neonatal [Unknown]
  - Hypospadias [Unknown]
  - Small for dates baby [Unknown]

NARRATIVE: CASE EVENT DATE: 20150907
